APPROVED DRUG PRODUCT: DAPSONE
Active Ingredient: DAPSONE
Strength: 7.5%
Dosage Form/Route: GEL;TOPICAL
Application: A212657 | Product #001
Applicant: PADAGIS ISRAEL PHARMACEUTICALS LTD
Approved: Nov 1, 2023 | RLD: No | RS: No | Type: DISCN